FAERS Safety Report 10244386 (Version 2)
Quarter: 2014Q2

REPORT INFORMATION
  Report Type: Spontaneous
  Country: IT (occurrence: None)
  Receive Date: 20140616
  Receipt Date: 20140624
  Transmission Date: 20141212
  Serious: Yes (Other)
  Sender: FDA-Public Use
  Company Number: 2014AP003308

PATIENT
  Age: 10 Year
  Sex: Female
  Weight: 36 kg

DRUGS (1)
  1. CLARITHROMYCIN [Suspect]
     Indication: MYCOPLASMA INFECTION
     Route: 048
     Dates: start: 20140503, end: 20140507

REACTIONS (5)
  - Angioedema [None]
  - Foreign body [None]
  - Abdominal pain [None]
  - Urticaria [None]
  - Vomiting [None]
